FAERS Safety Report 6874240-6 (Version None)
Quarter: 2010Q3

REPORT INFORMATION
  Report Type: 
  Country: None (occurrence: None)
  Receive Date: 20100723
  Receipt Date: 20090624
  Transmission Date: 20110219
  Serious: No
  Sender: FDA-Public Use
  Company Number: US-PFIZER INC-2009210729

PATIENT
  Sex: Female
  Weight: 72.562 kg

DRUGS (4)
  1. CHANTIX [Suspect]
     Indication: SMOKING CESSATION THERAPY
     Dosage: 0.5 MG, 1X/DAY
     Route: 048
     Dates: start: 20090420, end: 20090428
  2. ATENOLOL [Concomitant]
     Dosage: UNK
  3. FORASEQ [Concomitant]
     Dosage: UNK
     Dates: start: 20090420
  4. ALBUTEROL [Concomitant]
     Dosage: UNK
     Dates: end: 20090420

REACTIONS (1)
  - AGITATION [None]
